FAERS Safety Report 14591539 (Version 1)
Quarter: 2018Q1

REPORT INFORMATION
  Report Type: Spontaneous
  Country: CA (occurrence: CA)
  Receive Date: 20180302
  Receipt Date: 20180302
  Transmission Date: 20180509
  Serious: Yes (Hospitalization, Other)
  Sender: FDA-Public Use
  Company Number: CA-PFIZER INC-2017289921

PATIENT
  Age: 81 Year
  Sex: Female

DRUGS (3)
  1. XELJANZ [Suspect]
     Active Substance: TOFACITINIB CITRATE
     Indication: RHEUMATOID ARTHRITIS
     Dosage: 5 MG, 1X/DAY
     Route: 048
     Dates: start: 20160205, end: 20170629
  2. HYDROMORPHONE [Concomitant]
     Active Substance: HYDROMORPHONE
     Dosage: UNK
  3. ONDANSETRON [Concomitant]
     Active Substance: ONDANSETRON
     Dosage: UNK

REACTIONS (9)
  - Pyrexia [Unknown]
  - Confusional state [Unknown]
  - Chills [Unknown]
  - Localised infection [Not Recovered/Not Resolved]
  - Memory impairment [Unknown]
  - Suicidal ideation [Unknown]
  - Night sweats [Not Recovered/Not Resolved]
  - Muscular weakness [Unknown]
  - Peripheral coldness [Not Recovered/Not Resolved]
